FAERS Safety Report 5279185-3 (Version None)
Quarter: 2007Q1

REPORT INFORMATION
  Report Type: 
  Country: None (occurrence: None)
  Receive Date: 20061208
  Receipt Date: 20050210
  Transmission Date: 20070707
  Serious: Yes (Life-Threatening, Hospitalization)
  Sender: FDA-Public Use
  Company Number: 2005UW02368

PATIENT
  Age: 70 Year
  Sex: Male
  Weight: 94.3482 kg

DRUGS (15)
  1. CRESTOR [Suspect]
     Indication: DYSLIPIDAEMIA
     Dosage: 20 MG QD PO
     Route: 048
     Dates: start: 20040401, end: 20050107
  2. GEMFIBROZIL [Suspect]
     Dosage: 600 MG BID PO
     Route: 048
     Dates: start: 20040801, end: 20050107
  3. LISINOPRIL AND HYDROCHLOROTHIAZIDE [Concomitant]
  4. INDOMETHACIN [Concomitant]
  5. FUROSEMIDE [Concomitant]
  6. GLIPIZIDE [Concomitant]
  7. ASPIRIN [Concomitant]
  8. PEPCID AC [Concomitant]
  9. VITAMIN B6 [Concomitant]
  10. VITAMIN CAP [Concomitant]
  11. CITRACAL [Concomitant]
  12. VITAMIN B-12 [Concomitant]
  13. CALCIUM W/MAGNESIUM [Concomitant]
  14. ST. JOHNS WORTH [Concomitant]
  15. ESTER-C [Concomitant]

REACTIONS (5)
  - BRONCHITIS [None]
  - HYPOGLYCAEMIA [None]
  - INFLUENZA [None]
  - RENAL FAILURE [None]
  - RHABDOMYOLYSIS [None]
